FAERS Safety Report 8239326-2 (Version None)
Quarter: 2012Q1

REPORT INFORMATION
  Report Type: 
  Country: None (occurrence: None)
  Receive Date: 20120326
  Receipt Date: 20120312
  Transmission Date: 20120608
  Serious: Yes (Other)
  Sender: FDA-Public Use
  Company Number: 1228498

PATIENT
  Age: 30 Year
  Sex: Female

DRUGS (1)
  1. MAGNESIUM SULFATE [Suspect]
     Indication: HELLP SYNDROME
     Dosage: 6 G GRAM(S), 2 G/HOUR, INTRAVENOUS (NOT OTHERWISE SPECIFIED)
     Route: 042

REACTIONS (5)
  - MATERNAL EXPOSURE DURING PREGNANCY [None]
  - BLOOD PARATHYROID HORMONE ABNORMAL [None]
  - HYPOCALCAEMIA [None]
  - HYPERMAGNESAEMIA [None]
  - CAESAREAN SECTION [None]
